FAERS Safety Report 24105958 (Version 4)
Quarter: 2024Q4

REPORT INFORMATION
  Report Type: Spontaneous
  Country: US (occurrence: US)
  Receive Date: 20240717
  Receipt Date: 20241101
  Transmission Date: 20250114
  Serious: No
  Sender: PFIZER
  Company Number: US-PFIZER INC-202400211361

PATIENT
  Age: 18 Year
  Sex: Female
  Weight: 131.09 kg

DRUGS (3)
  1. GENOTROPIN [Suspect]
     Active Substance: SOMATROPIN
     Indication: Prader-Willi syndrome
     Dosage: 4 MG, 1X/DAY
     Dates: start: 2014
  2. LISINOPRIL [Concomitant]
     Active Substance: LISINOPRIL
     Indication: Cardiac disorder
     Dosage: 10MG TABLET ONCE A DAY BY MOUTH
     Route: 048
     Dates: start: 2022
  3. VICTOZA [Concomitant]
     Active Substance: LIRAGLUTIDE
     Indication: Weight control
     Dosage: DAILY INJECTION, DOSAGE VARIES
     Dates: start: 2022

REACTIONS (3)
  - Drug dose omission by device [Unknown]
  - Device delivery system issue [Unknown]
  - Device issue [Unknown]
